FAERS Safety Report 6610386-5 (Version None)
Quarter: 2010Q1

REPORT INFORMATION
  Report Type: 
  Country: None (occurrence: None)
  Receive Date: 20100302
  Receipt Date: 20100225
  Transmission Date: 20100710
  Serious: Yes (Death)
  Sender: FDA-Public Use
  Company Number: DE-NAPPMUNDI-DEU-2009-0005783

PATIENT
  Age: 51 Year
  Sex: Female

DRUGS (8)
  1. METHADONE [Suspect]
     Indication: DRUG DEPENDENCE
     Dosage: 210 MG, DAILY
     Route: 048
  2. METHADONE [Suspect]
     Indication: DRUG WITHDRAWAL MAINTENANCE THERAPY
  3. MORPHINE SULFATE [Suspect]
     Indication: DRUG DEPENDENCE
  4. DIAZEPAM [Concomitant]
  5. METHYLFENIDAAT HCL [Concomitant]
  6. OMEPRAZOL                          /00661201/ [Concomitant]
  7. LOPERAMIDE [Concomitant]
  8. LYRICA [Concomitant]

REACTIONS (1)
  - INTENTIONAL OVERDOSE [None]
